FAERS Safety Report 18883910 (Version 3)
Quarter: 2021Q3

REPORT INFORMATION
  Report Type: Spontaneous
  Country: US (occurrence: US)
  Receive Date: 20210212
  Receipt Date: 20210813
  Transmission Date: 20211014
  Serious: Yes (Hospitalization)
  Sender: FDA-Public Use
  Company Number: US-SA-2021SA042973

PATIENT
  Age: 53 Year
  Sex: Female
  Weight: 62 kg

DRUGS (43)
  1. FABRAZYME [Suspect]
     Active Substance: AGALSIDASE BETA
     Indication: FABRY^S DISEASE
     Dosage: 65 MG, QOW
     Route: 040
     Dates: start: 20070323
  2. EPINEPHRINE. [Concomitant]
     Active Substance: EPINEPHRINE
  3. FUROSEMIDE. [Concomitant]
     Active Substance: FUROSEMIDE
  4. PROCHLORPERAZINE. [Concomitant]
     Active Substance: PROCHLORPERAZINE
  5. ACETAMINOPHEN. [Concomitant]
     Active Substance: ACETAMINOPHEN
  6. DOCUSATE SODIUM. [Concomitant]
     Active Substance: DOCUSATE SODIUM
  7. PANTOPRAZOLE [Concomitant]
     Active Substance: PANTOPRAZOLE
  8. SEVELAMER [Concomitant]
     Active Substance: SEVELAMER
  9. AUGMENTIN [Concomitant]
     Active Substance: AMOXICILLIN\CLAVULANATE POTASSIUM
  10. NIFEDIPINE. [Concomitant]
     Active Substance: NIFEDIPINE
  11. SODIUM BICARBONATE. [Concomitant]
     Active Substance: SODIUM BICARBONATE
  12. MACROBID [CLARITHROMYCIN] [Concomitant]
     Active Substance: CLARITHROMYCIN
  13. BACLOFEN. [Concomitant]
     Active Substance: BACLOFEN
  14. BACLOFEN. [Concomitant]
     Active Substance: BACLOFEN
  15. WARFARIN SODIUM. [Concomitant]
     Active Substance: WARFARIN SODIUM
  16. HEPARIN [Concomitant]
     Active Substance: HEPARIN SODIUM
  17. HYDROXYZINE [Concomitant]
     Active Substance: HYDROXYZINE HYDROCHLORIDE
  18. TACROLIMUS. [Concomitant]
     Active Substance: TACROLIMUS
  19. BENZONATATE. [Concomitant]
     Active Substance: BENZONATATE
  20. HYDRALAZINE [Concomitant]
     Active Substance: HYDRALAZINE HYDROCHLORIDE
  21. LIDOCAINE/PRILOCAINE [Concomitant]
     Active Substance: LIDOCAINE\PRILOCAINE
  22. VENTOLIN [Concomitant]
     Active Substance: ALBUTEROL SULFATE
  23. NORMAL SALINE [Concomitant]
     Active Substance: SODIUM CHLORIDE
  24. GABAPENTIN. [Concomitant]
     Active Substance: GABAPENTIN
  25. NITROFURANTOIN. [Concomitant]
     Active Substance: NITROFURANTOIN
  26. PROGESTERONE. [Concomitant]
     Active Substance: PROGESTERONE
  27. PNEUMOVAX 23 [Concomitant]
     Active Substance: PNEUMOCOCCAL VACCINE, POLYVALENT 23
  28. MECLIZINE [Concomitant]
     Active Substance: MECLIZINE HYDROCHLORIDE
  29. FLUBLOK [Concomitant]
     Active Substance: INFLUENZA A VIRUS A/CALIFORNIA/7/2009 (H1N1) RECOMBINANT HEMAGGLUTININ ANTIGEN\INFLUENZA A VIRUS A/VICTORIA/361/2011 (H3N2) RECOMBINANT HEMAGGLUTININ ANTIGEN\INFLUENZA B VIRUS B/WISCONSIN/1/2010 RECOMBINANT HEMAGGLUTININ ANTIGEN
  30. DULCOLAX (BISACODYL) [Concomitant]
     Active Substance: BISACODYL
  31. STERILE WATER [Concomitant]
     Active Substance: WATER
  32. FABRAZYME [Suspect]
     Active Substance: AGALSIDASE BETA
     Indication: RENAL TRANSPLANT
  33. DIPHENHYDRAMINE. [Concomitant]
     Active Substance: DIPHENHYDRAMINE
  34. MACROBID [CLARITHROMYCIN] [Concomitant]
     Active Substance: CLARITHROMYCIN
  35. CODEINE [Concomitant]
     Active Substance: CODEINE
  36. METOPROLOL TARTRATE. [Concomitant]
     Active Substance: METOPROLOL TARTRATE
  37. TRIAMCINOLONE [Concomitant]
     Active Substance: TRIAMCINOLONE
  38. CALCITRIOL. [Concomitant]
     Active Substance: CALCITRIOL
  39. MIRALAX [Concomitant]
     Active Substance: POLYETHYLENE GLYCOL 3350
  40. VITAMIN D3 [Concomitant]
     Active Substance: CHOLECALCIFEROL
  41. ZOFRAN [Concomitant]
     Active Substance: ONDANSETRON HYDROCHLORIDE
  42. MAGNESIUM [Concomitant]
     Active Substance: MAGNESIUM
  43. ASPIRIN [ACETYLSALICYLIC ACID] [Concomitant]
     Active Substance: ASPIRIN

REACTIONS (6)
  - Catheter site haemorrhage [Unknown]
  - Dialysis [Unknown]
  - Off label use [Unknown]
  - Inappropriate schedule of product administration [Unknown]
  - Blood pressure increased [Unknown]
  - Hospitalisation [Unknown]

NARRATIVE: CASE EVENT DATE: 20210511
